FAERS Safety Report 4659332-4 (Version None)
Quarter: 2005Q2

REPORT INFORMATION
  Report Type: 
  Country: None (occurrence: None)
  Receive Date: 20050510
  Receipt Date: 20050427
  Transmission Date: 20051028
  Serious: No
  Sender: FDA-Public Use
  Company Number: 05P-150-0299042-00

PATIENT
  Age: 68 Year
  Sex: Female

DRUGS (6)
  1. HUMIRA [Suspect]
     Dosage: 40 MG, 1 IN 2 WK, SUBCUTANEOUS
     Route: 058
     Dates: start: 20040624, end: 20050101
  2. METHOTREXATE [Concomitant]
  3. FOLACIN [Concomitant]
  4. AMLODIPINE BESYLATE [Concomitant]
  5. OPTIMAT [Concomitant]
  6. LEKOVIT CA [Concomitant]

REACTIONS (2)
  - JOINT SWELLING [None]
  - LYMPHOMA [None]
